FAERS Safety Report 7928636-1 (Version None)
Quarter: 2011Q4

REPORT INFORMATION
  Report Type: 
  Country: None (occurrence: None)
  Receive Date: 20111118
  Receipt Date: 20111109
  Transmission Date: 20120403
  Serious: Yes (Death)
  Sender: FDA-Public Use
  Company Number: IT-GENZYME-CERZ-1002280

PATIENT
  Sex: Male

DRUGS (3)
  1. CEREZYME [Suspect]
     Indication: GAUCHER'S DISEASE
     Dosage: 400 U, UNK
     Route: 042
     Dates: start: 20110530, end: 20110922
  2. KEPPRA [Concomitant]
     Indication: PRODUCT USED FOR UNKNOWN INDICATION
     Route: 065
  3. INFANRIX [Concomitant]
     Indication: IMMUNISATION
     Route: 065

REACTIONS (2)
  - SUDDEN DEATH [None]
  - CYTOMEGALOVIRUS TEST POSITIVE [None]
